FAERS Safety Report 10143453 (Version 2)
Quarter: 2014Q2

REPORT INFORMATION
  Report Type: Report from Study
  Country: GB (occurrence: GB)
  Receive Date: 20140430
  Receipt Date: 20140516
  Transmission Date: 20141212
  Serious: Yes (Hospitalization)
  Sender: FDA-Public Use
  Company Number: GB-PFIZER INC-2014115851

PATIENT
  Age: 58 Year
  Sex: Male
  Weight: 101.5 kg

DRUGS (3)
  1. AXITINIB [Suspect]
     Indication: SYNOVIAL SARCOMA METASTATIC
     Dosage: UNK
     Dates: start: 20140409, end: 20140411
  2. TRAMADOL [Concomitant]
     Indication: PAIN
     Dosage: 50 MG, AS NEEDED
     Route: 048
     Dates: start: 201301
  3. RAMIPRIL [Concomitant]
     Indication: HYPERTENSION
     Dosage: 2.5 MG, 2X/DAY
     Route: 048
     Dates: start: 20140412, end: 20140414

REACTIONS (1)
  - Pneumothorax [Recovered/Resolved with Sequelae]
